FAERS Safety Report 5049090-6 (Version None)
Quarter: 2006Q3

REPORT INFORMATION
  Report Type: 
  Country: None (occurrence: None)
  Receive Date: 20060706
  Receipt Date: 20060623
  Transmission Date: 20061208
  Serious: Yes (Death, Other)
  Sender: FDA-Public Use
  Company Number: 2006076343

PATIENT
  Age: 78 Year
  Sex: Female
  Weight: 80 kg

DRUGS (1)
  1. METHYLPREDNISOLONE ACETATE [Suspect]
     Indication: CHRONIC OBSTRUCTIVE PULMONARY DISEASE
     Dosage: 120 MG (40 MG, 3 IN 1 D), INTRAVENOUS
     Route: 042
     Dates: end: 20050615

REACTIONS (2)
  - RESPIRATORY FAILURE [None]
  - WRONG DRUG ADMINISTERED [None]
